FAERS Safety Report 24439206 (Version 6)
Quarter: 2025Q3

REPORT INFORMATION
  Report Type: Spontaneous
  Country: US (occurrence: US)
  Receive Date: 20241015
  Receipt Date: 20250711
  Transmission Date: 20251020
  Serious: No
  Sender: GILEAD
  Company Number: US-GILEAD-2024-0690692

PATIENT
  Age: 44 Year
  Sex: Male
  Weight: 69 kg

DRUGS (3)
  1. LENACAPAVIR [Suspect]
     Active Substance: LENACAPAVIR
     Indication: Product used for unknown indication
     Route: 058
     Dates: start: 20241010, end: 20241010
  2. LENACAPAVIR [Suspect]
     Active Substance: LENACAPAVIR
     Route: 058
     Dates: start: 20241024, end: 20241024
  3. CABENUVA [Concomitant]
     Active Substance: CABOTEGRAVIR\RILPIVIRINE
     Route: 030
     Dates: start: 20240301

REACTIONS (4)
  - Injection site pain [Unknown]
  - Injection site discharge [Unknown]
  - Extra dose administered [Unknown]
  - Wrong technique in product usage process [Recovered/Resolved]

NARRATIVE: CASE EVENT DATE: 20241010
